FAERS Safety Report 13059416 (Version 1)
Quarter: 2016Q4

REPORT INFORMATION
  Report Type: Spontaneous
  Country: US (occurrence: US)
  Receive Date: 20161223
  Receipt Date: 20161223
  Transmission Date: 20170207
  Serious: No
  Sender: FDA-Public Use
  Company Number: US-NEPHRON PHARMACEUTICALS CORPORATION-1061236

PATIENT
  Sex: Female

DRUGS (1)
  1. ALBUTEROL SULFATE INHALATION SOLUTION, 0.083% [Suspect]
     Active Substance: ALBUTEROL SULFATE
     Route: 055
     Dates: start: 20161210, end: 20161218

REACTIONS (9)
  - Pyrexia [Not Recovered/Not Resolved]
  - Nausea [Not Recovered/Not Resolved]
  - Cough [Not Recovered/Not Resolved]
  - Dysphonia [Not Recovered/Not Resolved]
  - Chest pain [Not Recovered/Not Resolved]
  - Oropharyngeal pain [Not Recovered/Not Resolved]
  - Dyspnoea [Not Recovered/Not Resolved]
  - Diarrhoea [Unknown]
  - Malaise [Not Recovered/Not Resolved]

NARRATIVE: CASE EVENT DATE: 20161219
